FAERS Safety Report 6185259-5 (Version None)
Quarter: 2009Q2

REPORT INFORMATION
  Report Type: 
  Country: None (occurrence: None)
  Receive Date: 20090511
  Receipt Date: 20090428
  Transmission Date: 20091009
  Serious: Yes (Hospitalization, Disabling)
  Sender: FDA-Public Use
  Company Number: US-ROCHE-416084

PATIENT
  Sex: Male
  Weight: 94.3 kg

DRUGS (4)
  1. ACCUTANE [Suspect]
     Dosage: STRENGTH REPORTED AS 40 MG.
     Route: 048
     Dates: start: 19990825, end: 20000228
  2. ACCUTANE [Suspect]
     Dosage: STRENGTH REPORTED AS 40 MG.
     Route: 048
     Dates: start: 20000228, end: 20000411
  3. ACCUTANE [Suspect]
     Route: 048
     Dates: start: 20000411, end: 20000501
  4. ACCUTANE [Suspect]
     Route: 048
     Dates: start: 20000501, end: 20000613

REACTIONS (11)
  - ACNE [None]
  - BLOOD URINE PRESENT [None]
  - COLITIS [None]
  - COLITIS ULCERATIVE [None]
  - EPISTAXIS [None]
  - GASTROINTESTINAL DISORDER [None]
  - INFLAMMATORY BOWEL DISEASE [None]
  - INTESTINAL HAEMORRHAGE [None]
  - MULTI-ORGAN DISORDER [None]
  - PANCREATITIS [None]
  - ROAD TRAFFIC ACCIDENT [None]
